FAERS Safety Report 24093320 (Version 1)
Quarter: 2024Q3

REPORT INFORMATION
  Report Type: Spontaneous
  Country: US (occurrence: US)
  Receive Date: 20240715
  Receipt Date: 20240715
  Transmission Date: 20241016
  Serious: No
  Sender: MEITHEAL PHARMACEUTICALS
  Company Number: US-MEITHEAL-2024MPSPO00151

PATIENT
  Sex: Male

DRUGS (1)
  1. DAPTOMYCIN [Suspect]
     Active Substance: DAPTOMYCIN
     Indication: Product used for unknown indication
     Route: 042

REACTIONS (5)
  - Administration site extravasation [Unknown]
  - Product dose omission issue [Unknown]
  - Erythema [Unknown]
  - Paraesthesia [Unknown]
  - Flushing [Unknown]

NARRATIVE: CASE EVENT DATE: 20240523
